FAERS Safety Report 5206247-9 (Version None)
Quarter: 2007Q1

REPORT INFORMATION
  Report Type: 
  Country: None (occurrence: None)
  Receive Date: 20070111
  Receipt Date: 20061228
  Transmission Date: 20070707
  Serious: Yes (Hospitalization)
  Sender: FDA-Public Use
  Company Number: US-SHR-US-2006-029114

PATIENT
  Age: 43 Year
  Sex: Female
  Weight: 99.773 kg

DRUGS (12)
  1. BETASERON [Suspect]
     Indication: RELAPSING-REMITTING MULTIPLE SCLEROSIS
     Dosage: 8 MIU, EVERY 2D
     Route: 058
     Dates: start: 19840101, end: 20041201
  2. BETASERON [Suspect]
     Dosage: 8 MIU, EVERY 2D
     Route: 058
     Dates: start: 20050501
  3. TEGRETOL [Concomitant]
     Indication: TRIGEMINAL NEURALGIA
     Dosage: 200 MG, 2X/DAY
     Route: 048
     Dates: start: 19840101
  4. TEGRETOL [Concomitant]
     Dosage: 100 MG, BED T.
     Route: 048
     Dates: start: 19840101
  5. CYLERT [Concomitant]
     Dosage: 37.5 MG, 3X/DAY, PRN
     Route: 048
     Dates: start: 19840101
  6. NEURONTIN [Concomitant]
     Indication: TRIGEMINAL NEURALGIA
     Dosage: 300 MG, 3X/DAY
  7. IBUPROFEN [Concomitant]
     Indication: ARTHRITIS
     Dosage: 800 MG, 2X/DAY
  8. IRON PREPARATIONS [Concomitant]
     Dosage: QD
  9. COUMADIN [Concomitant]
     Dosage: 1 MG/D, UNK
  10. ASPIRIN [Concomitant]
     Dosage: 5 G, QD
  11. CALCIUM [Concomitant]
     Dosage: 500 MG/D, UNK
  12. MULTIVIT [Concomitant]
     Dosage: QD

REACTIONS (2)
  - CHOLELITHIASIS [None]
  - UTERINE CANCER [None]
